FAERS Safety Report 11397850 (Version 1)
Quarter: 2015Q3

REPORT INFORMATION
  Report Type: Spontaneous
  Country: US (occurrence: US)
  Receive Date: 20150819
  Receipt Date: 20150819
  Transmission Date: 20151125
  Serious: No
  Sender: FDA-Public Use
  Company Number: US-ACTELION PHARMACEUTICALS US, INC.-A-US2015-112497

PATIENT
  Age: 71 Year
  Sex: Male

DRUGS (1)
  1. VALCHLOR [Suspect]
     Active Substance: MECHLORETHAMINE
     Indication: MYCOSIS FUNGOIDES
     Dosage: UNK, EVERY OTHER DAY
     Route: 061
     Dates: start: 20150103

REACTIONS (4)
  - Pruritus [Unknown]
  - Erythema [Unknown]
  - Burning sensation [Unknown]
  - Skin irritation [Unknown]
